FAERS Safety Report 5497093-X (Version None)
Quarter: 2007Q4

REPORT INFORMATION
  Report Type: 
  Country: None (occurrence: None)
  Receive Date: 20071023
  Receipt Date: 20071008
  Transmission Date: 20080405
  Serious: Yes (Other)
  Sender: FDA-Public Use
  Company Number: 2007S1009955

PATIENT
  Age: 64 Year
  Sex: Male

DRUGS (3)
  1. LOPERAMIDE [Suspect]
     Indication: IRRITABLE BOWEL SYNDROME
     Dosage: 4 MG; ORAL
     Route: 048
     Dates: start: 20070907, end: 20070909
  2. ALLOPURINOL [Concomitant]
  3. CODEINE SUL TAB [Concomitant]

REACTIONS (1)
  - HALLUCINATION [None]
